FAERS Safety Report 19813556 (Version 1)
Quarter: 2021Q3

REPORT INFORMATION
  Report Type: Spontaneous
  Country: US (occurrence: US)
  Receive Date: 20210909
  Receipt Date: 20210909
  Transmission Date: 20211014
  Serious: Yes (Life-Threatening, Other)
  Sender: FDA-Public Use
  Company Number: None

PATIENT
  Age: 48 Year
  Sex: Female
  Weight: 62.1 kg

DRUGS (5)
  1. ARMOUR THYROID [Concomitant]
     Active Substance: THYROID, PORCINE
  2. MULTIVITAMIN [Concomitant]
     Active Substance: VITAMINS
  3. VITAMIN D [Concomitant]
     Active Substance: VITAMIN D NOS
  4. MONTELUKAST 10MG TABLETS [Suspect]
     Active Substance: MONTELUKAST\MONTELUKAST SODIUM
     Indication: ASTHMA
     Dosage: ?          QUANTITY:.5 CAPSULE(S);?
     Route: 048
     Dates: start: 20210908, end: 20210909
  5. ZINC. [Concomitant]
     Active Substance: ZINC

REACTIONS (12)
  - Wheezing [None]
  - Ear pain [None]
  - Hallucination, visual [None]
  - Dyspnoea [None]
  - Headache [None]
  - Restlessness [None]
  - Cough [None]
  - Nightmare [None]
  - Thirst [None]
  - Dry throat [None]
  - Nausea [None]
  - Dysphonia [None]

NARRATIVE: CASE EVENT DATE: 20210909
